FAERS Safety Report 7850691-8 (Version None)
Quarter: 2011Q4

REPORT INFORMATION
  Report Type: 
  Country: None (occurrence: None)
  Receive Date: 20111024
  Receipt Date: 20111010
  Transmission Date: 20120403
  Serious: Yes (Hospitalization)
  Sender: FDA-Public Use
  Company Number: 7071172

PATIENT
  Age: 61 Year
  Sex: Female

DRUGS (8)
  1. LEVOTHYROXINE SODIUM [Concomitant]
  2. DRAMIM (ALL OTHER THERAPEUTIC PRODUCTS) [Concomitant]
  3. ACETAMINOPHEN [Concomitant]
  4. REBIF [Suspect]
     Indication: RELAPSING-REMITTING MULTIPLE SCLEROSIS
     Dosage: 18.8571 MCG (44 MCG,3 IN 1 WK)
     Dates: start: 20071101
  5. ATENOLOL [Concomitant]
  6. RIFOCINA(RIFAMYCIN SODIUM) [Concomitant]
  7. ACECLOFENAC (ACECLOFENAC) [Concomitant]
  8. CEFALOXINA (ALL OTHER NON-THERAPEUTIC PRODUCTS) [Concomitant]

REACTIONS (3)
  - EXOSTOSIS [None]
  - INTERVERTEBRAL DISC PROTRUSION [None]
  - MULTIPLE SCLEROSIS RELAPSE [None]
